FAERS Safety Report 15656277 (Version 7)
Quarter: 2019Q2

REPORT INFORMATION
  Report Type: Report from Study
  Country: US (occurrence: US)
  Receive Date: 20181126
  Receipt Date: 20190430
  Transmission Date: 20190711
  Serious: Yes (Life-Threatening, Hospitalization, Other)
  Sender: FDA-Public Use
  Company Number: US-JNJFOC-20181124441

PATIENT
  Sex: Male

DRUGS (1)
  1. STELARA [Suspect]
     Active Substance: USTEKINUMAB
     Indication: CROHN^S DISEASE
     Route: 058
     Dates: start: 20180809

REACTIONS (7)
  - Upper respiratory tract infection [Unknown]
  - Sinus disorder [Unknown]
  - Rectal cancer stage III [Unknown]
  - Cystitis [Unknown]
  - Epistaxis [Unknown]
  - Crohn^s disease [Unknown]
  - Vesical fistula [Unknown]

NARRATIVE: CASE EVENT DATE: 2019
